FAERS Safety Report 7448274-7 (Version None)
Quarter: 2011Q2

REPORT INFORMATION
  Report Type: 
  Country: None (occurrence: None)
  Receive Date: 20110429
  Receipt Date: 20110428
  Transmission Date: 20111010
  Serious: Yes (Hospitalization, Disabling, Other)
  Sender: FDA-Public Use
  Company Number: TR-ABBOTT-11P-161-0722138-00

PATIENT
  Age: 5 Year
  Sex: Male

DRUGS (1)
  1. SEVOFLURANE [Suspect]
     Indication: GENERAL ANAESTHESIA
     Route: 055
     Dates: start: 20100913, end: 20100913

REACTIONS (6)
  - LOSS OF CONSCIOUSNESS [None]
  - BRAIN INJURY [None]
  - MOBILITY DECREASED [None]
  - PYREXIA [None]
  - DISABILITY [None]
  - ABASIA [None]
